FAERS Safety Report 19306565 (Version 1)
Quarter: 2021Q2

REPORT INFORMATION
  Report Type: Spontaneous
  Country: US (occurrence: US)
  Receive Date: 20210525
  Receipt Date: 20210525
  Transmission Date: 20210717
  Serious: Yes (Other)
  Sender: FDA-Public Use
  Company Number: US-PURDUE-USA-2020-0204648

PATIENT
  Age: 53 Year
  Sex: Female

DRUGS (9)
  1. MORPHINE [Suspect]
     Active Substance: MORPHINE
     Indication: PAIN
     Dosage: UNK
     Route: 051
     Dates: start: 20131110
  2. ONDANSETRON [Concomitant]
     Active Substance: ONDANSETRON
     Indication: PAIN
     Dosage: 4 MG, UNK
     Route: 065
     Dates: start: 20131110
  3. DOCUSATE SODIUM. [Concomitant]
     Active Substance: DOCUSATE SODIUM
     Indication: PAIN
     Dosage: UNK
     Route: 065
     Dates: start: 20131010
  4. ENOXAPARIN [Concomitant]
     Active Substance: ENOXAPARIN
     Indication: PAIN
     Dosage: 40 MG, UNK
     Route: 065
     Dates: start: 20131110
  5. SUMATRIPTAN. [Concomitant]
     Active Substance: SUMATRIPTAN
     Indication: PAIN
     Dosage: UNK
     Route: 065
     Dates: start: 20131010
  6. ACETAMINOPHEN. [Concomitant]
     Active Substance: ACETAMINOPHEN
     Indication: PAIN
     Dosage: UNK
     Route: 065
     Dates: start: 20131010
  7. OXYCODONE HYDROCHLORIDE (SIMILAR TO NDA 22?272) [Suspect]
     Active Substance: OXYCODONE HYDROCHLORIDE
     Indication: PAIN
     Dosage: 10 MG, UNK
     Route: 065
     Dates: start: 20131010
  8. FENTANYL CITRATE. [Concomitant]
     Active Substance: FENTANYL CITRATE
     Indication: PAIN
     Dosage: 25 MCG, UNK
     Route: 065
     Dates: start: 20131010
  9. SIMETHICONE (DIMETHICONE) [Concomitant]
     Active Substance: DIMETHICONE
     Indication: PAIN
     Dosage: 80 MG, UNK
     Route: 065
     Dates: start: 20131010

REACTIONS (12)
  - Learning disability [Unknown]
  - Asthenia [Unknown]
  - Cough [Unknown]
  - Electric shock sensation [Unknown]
  - Visual impairment [Unknown]
  - Pain in extremity [Unknown]
  - Choking [Unknown]
  - Vomiting [Unknown]
  - Gait disturbance [Unknown]
  - Nausea [Unknown]
  - Back disorder [Unknown]
  - Muscle spasms [Unknown]
